FAERS Safety Report 14117338 (Version 3)
Quarter: 2018Q1

REPORT INFORMATION
  Report Type: Spontaneous
  Country: US (occurrence: US)
  Receive Date: 20171023
  Receipt Date: 20180321
  Transmission Date: 20180508
  Serious: Yes (Hospitalization, Other)
  Sender: FDA-Public Use
  Company Number: US-ALLERGAN-1760085US

PATIENT
  Age: 27 Year
  Sex: Female

DRUGS (2)
  1. BOTOX [Suspect]
     Active Substance: ONABOTULINUMTOXINA
     Indication: IMPAIRED GASTRIC EMPTYING
     Dosage: 100 UNITS, SINGLE
     Route: 030
  2. PROPOFOL. [Concomitant]
     Active Substance: PROPOFOL
     Indication: SEDATION
     Dosage: UNK
     Route: 065

REACTIONS (7)
  - Muscular weakness [Recovered/Resolved]
  - Quadriplegia [Recovered/Resolved]
  - Botulism [Recovered/Resolved]
  - Gait inability [Recovered/Resolved]
  - Off label use [Unknown]
  - Tremor [Recovered/Resolved]
  - Dyspnoea [Recovered/Resolved]
